FAERS Safety Report 4971698-4 (Version None)
Quarter: 2006Q2

REPORT INFORMATION
  Report Type: 
  Country: None (occurrence: None)
  Receive Date: 20060413
  Receipt Date: 20060329
  Transmission Date: 20061013
  Serious: Yes (Life-Threatening)
  Sender: FDA-Public Use
  Company Number: GBWYE516729MAR06

PATIENT
  Age: 74 Year
  Sex: Female

DRUGS (4)
  1. ENBREL [Suspect]
     Indication: RHEUMATOID ARTHRITIS
     Dosage: 25MG
     Route: 058
     Dates: start: 20051018, end: 20051212
  2. PREDNISOLONE [Concomitant]
     Indication: RHEUMATOID ARTHRITIS
     Dosage: 5MG
     Dates: start: 20030101
  3. PARACETAMOL [Concomitant]
     Indication: RHEUMATOID ARTHRITIS
     Dosage: UNKNOWN
  4. OMEPRAZOLE [Concomitant]
     Dosage: UNKNOWN

REACTIONS (2)
  - ESCHERICHIA URINARY TRACT INFECTION [None]
  - RENAL FAILURE ACUTE [None]
